FAERS Safety Report 15726105 (Version 1)
Quarter: 2018Q4

REPORT INFORMATION
  Report Type: Spontaneous
  Country: DE (occurrence: DE)
  Receive Date: 20181216
  Receipt Date: 20181216
  Transmission Date: 20190205
  Serious: Yes (Hospitalization)
  Sender: FDA-Public Use
  Company Number: DE-ASTRAZENECA-2018SF62913

PATIENT
  Age: 60 Year
  Sex: Female
  Weight: 52 kg

DRUGS (20)
  1. CISPLATIN. [Suspect]
     Active Substance: CISPLATIN
     Indication: PLASMA CELL MYELOMA
     Dosage: DOSAGE FORM: UNSPECIFIED
     Route: 042
     Dates: start: 20180801
  2. DURVALUMAB. [Suspect]
     Active Substance: DURVALUMAB
     Indication: PLASMA CELL MYELOMA
     Dosage: 1500.0MG UNKNOWN
     Route: 042
     Dates: start: 20180702, end: 20180702
  3. LOPERAMIDE [Concomitant]
     Active Substance: LOPERAMIDE
     Indication: DIARRHOEA
     Dosage: DOSAGE FORM: UNSPECIFIED ONCE/SINGLE ADMINISTRATION
     Route: 048
     Dates: start: 20180924, end: 20180924
  4. CALCIUM CHLORIDE. [Concomitant]
     Active Substance: CALCIUM CHLORIDE
     Indication: PROPHYLAXIS
     Dosage: DOSAGE FORM: UNSPECIFIED
     Route: 042
     Dates: start: 20181003, end: 20181003
  5. DOXORUBICIN [Suspect]
     Active Substance: DOXORUBICIN
     Indication: PLASMA CELL MYELOMA
     Route: 042
     Dates: start: 20180801
  6. THALIDOMIDE [Suspect]
     Active Substance: THALIDOMIDE
     Indication: PLASMA CELL MYELOMA
     Dosage: 1400.0MG UNKNOWN
     Route: 048
     Dates: start: 20180802, end: 20180919
  7. GRANULOCYTE COLONY STIMULATING FACTOR [Concomitant]
     Active Substance: GRANULOCYTE COLONY-STIMULATING FACTOR NOS
     Dosage: DOSAGE FORM: UNSPECIFIED
  8. LEVOTHYROXINE. [Concomitant]
     Active Substance: LEVOTHYROXINE
     Indication: THYROIDECTOMY
     Dosage: DOSAGE FORM: UNSPECIFIED100UG/INHAL DAILY
     Route: 048
     Dates: start: 2016
  9. CYCLOPHOSPHAMIDE. [Suspect]
     Active Substance: CYCLOPHOSPHAMIDE
     Indication: PLASMA CELL MYELOMA
     Dosage: 2320.0MG UNKNOWN
     Route: 042
     Dates: start: 20180801
  10. MONO-EMBOLEX [Concomitant]
     Active Substance: CERTOPARIN SODIUM
     Indication: THROMBOSIS PROPHYLAXIS
     Dosage: DOSAGE FORM: UNSPECIFIED
     Route: 058
     Dates: start: 20180808, end: 20180921
  11. PEGFILGRASTIM [Concomitant]
     Active Substance: PEGFILGRASTIM
     Indication: PROPHYLAXIS
     Dosage: DOSAGE FORM: UNSPECIFIED, DAY 5 OF 42
     Route: 058
     Dates: start: 20180805
  12. MESNA. [Concomitant]
     Active Substance: MESNA
     Indication: PLASMA CELL MYELOMA
     Dosage: DOSAGE FORM: UNKNOWN, DAY 1-4 OF 42 DAY CYCLE
     Route: 042
     Dates: start: 20180108
  13. DEXAMETHASONE. [Suspect]
     Active Substance: DEXAMETHASONE
     Indication: PLASMA CELL MYELOMA
     Route: 048
     Dates: start: 20180801
  14. POMALIDOMIDE [Suspect]
     Active Substance: POMALIDOMIDE
     Indication: PLASMA CELL MYELOMA
     Route: 048
     Dates: start: 20180702, end: 20180716
  15. SULFAMETHOXAZOLE [Concomitant]
     Active Substance: SULFAMETHOXAZOLE
     Indication: INFECTION PROPHYLAXIS
     Dosage: DOSAGE FORM: UNSPECIFIED
     Route: 048
     Dates: start: 2016, end: 20180920
  16. BORTEZOMIB. [Suspect]
     Active Substance: BORTEZOMIB
     Indication: PLASMA CELL MYELOMA
     Dosage: DOSAGE FORM: LYOPHILIZED POWDER
     Route: 058
     Dates: start: 20180801
  17. COLECALCIFEROL [Concomitant]
     Active Substance: CHOLECALCIFEROL
     Indication: PROPHYLAXIS
     Dosage: DOSAGE FORM: UNSPECIFIED
     Route: 048
     Dates: start: 20180618, end: 20180922
  18. ETOPOSIDE. [Suspect]
     Active Substance: ETOPOSIDE
     Indication: PLASMA CELL MYELOMA
     Dosage: DOSAGE FORM: UNSPECIFIED, 3 IN 42 DAYS
     Dates: start: 20180801
  19. FLUVASTATIN [Concomitant]
     Active Substance: FLUVASTATIN SODIUM
     Indication: TYPE IIB HYPERLIPIDAEMIA
     Dosage: DOSAGE FORM: UNSPECIFIED
     Route: 048
     Dates: start: 20180807, end: 20180921
  20. BLEMAREN [Concomitant]
     Indication: URINARY TRACT INFECTION
     Dosage: DOSAGE FORM: UNSPECIFIED, DOSAGE-3 OTHER
     Route: 048
     Dates: start: 20180627, end: 20180922

REACTIONS (3)
  - Pancytopenia [Not Recovered/Not Resolved]
  - Urosepsis [Not Recovered/Not Resolved]
  - Mucosal inflammation [Not Recovered/Not Resolved]

NARRATIVE: CASE EVENT DATE: 20180922
